FAERS Safety Report 7112353-4 (Version None)
Quarter: 2010Q4

REPORT INFORMATION
  Report Type: 
  Country: None (occurrence: None)
  Receive Date: 20101119
  Receipt Date: 20100824
  Transmission Date: 20110411
  Serious: No
  Sender: FDA-Public Use
  Company Number: A0877481A

PATIENT
  Age: 75 Year
  Sex: Male

DRUGS (2)
  1. AVODART [Suspect]
     Indication: BENIGN PROSTATIC HYPERPLASIA
     Dosage: 1TAB AS REQUIRED
     Route: 048
     Dates: start: 20090527, end: 20100721
  2. ASPIRIN [Concomitant]
     Dosage: 81MG PER DAY

REACTIONS (1)
  - BREAST ENLARGEMENT [None]
